FAERS Safety Report 24146580 (Version 3)
Quarter: 2024Q4

REPORT INFORMATION
  Report Type: Report from Study
  Country: AU (occurrence: AU)
  Receive Date: 20240729
  Receipt Date: 20241021
  Transmission Date: 20250115
  Serious: No
  Sender: ROCHE
  Company Number: AU-ROCHE-3568242

PATIENT
  Sex: Female
  Weight: 88.0 kg

DRUGS (2)
  1. COTELLIC [Suspect]
     Active Substance: COBIMETINIB
     Indication: Astrocytoma
     Dosage: D1-21
     Route: 048
  2. COTELLIC [Suspect]
     Active Substance: COBIMETINIB
     Indication: Brain neoplasm

REACTIONS (2)
  - Off label use [Unknown]
  - No adverse event [Unknown]
